FAERS Safety Report 24666213 (Version 1)
Quarter: 2024Q4

REPORT INFORMATION
  Report Type: Spontaneous
  Country: US (occurrence: US)
  Receive Date: 20241126
  Receipt Date: 20241126
  Transmission Date: 20250115
  Serious: Yes (Other)
  Sender: GLAXOSMITHKLINE
  Company Number: US-GSKCCFUS-Case-02156017_AE-118849

PATIENT

DRUGS (2)
  1. BENLYSTA [Suspect]
     Active Substance: BELIMUMAB
     Indication: Systemic lupus erythematosus
     Dosage: 200 MG/ML, WE
     Dates: start: 202408
  2. AMOXICILLIN\CLAVULANIC ACID [Concomitant]
     Active Substance: AMOXICILLIN\CLAVULANIC ACID
     Indication: Oropharyngeal pain
     Dosage: UNK UNK, BID 875-125MG
     Dates: start: 20241113

REACTIONS (12)
  - Burn oral cavity [Not Recovered/Not Resolved]
  - Oropharyngeal pain [Not Recovered/Not Resolved]
  - Skin burning sensation [Not Recovered/Not Resolved]
  - Impaired healing [Unknown]
  - Oral infection [Not Recovered/Not Resolved]
  - Paranasal sinus discomfort [Recovered/Resolved]
  - Pain of skin [Unknown]
  - Gingival pain [Unknown]
  - Mouth ulceration [Unknown]
  - Oral disorder [Recovered/Resolved]
  - Tenderness [Unknown]
  - Aphthous ulcer [Unknown]

NARRATIVE: CASE EVENT DATE: 20241001
